FAERS Safety Report 24383586 (Version 2)
Quarter: 2024Q4

REPORT INFORMATION
  Report Type: Spontaneous
  Country: US (occurrence: US)
  Receive Date: 20241001
  Receipt Date: 20241118
  Transmission Date: 20250114
  Serious: Yes (Death, Hospitalization, Other)
  Sender: CIPLA
  Company Number: US-CIPLA LTD.-2024US10680

PATIENT

DRUGS (1)
  1. AMBRISENTAN [Suspect]
     Active Substance: AMBRISENTAN
     Indication: Pulmonary hypertension
     Dosage: UNK, 10 MILLIGRAM
     Route: 065
     Dates: start: 20211130, end: 20240307

REACTIONS (2)
  - Haemorrhage intracranial [Fatal]
  - Brain herniation [Fatal]

NARRATIVE: CASE EVENT DATE: 20240101
